FAERS Safety Report 5526912-3 (Version None)
Quarter: 2007Q4

REPORT INFORMATION
  Report Type: 
  Country: None (occurrence: None)
  Receive Date: 20071127
  Receipt Date: 20071119
  Transmission Date: 20080405
  Serious: Yes (Other)
  Sender: FDA-Public Use
  Company Number: JP-PFIZER INC-2007095122

PATIENT
  Age: 76 Year
  Sex: Male

DRUGS (5)
  1. NORVASC [Interacting]
     Dosage: DAILY DOSE:5MG-FREQ:FREQUENCY: QD
     Route: 048
  2. NORVASC [Interacting]
     Dosage: DAILY DOSE:2.5MG-FREQ:FREQUENCY: QD
     Route: 048
     Dates: start: 20050701, end: 20071109
  3. ALCOHOL [Interacting]
  4. ZANTAC [Suspect]
     Dosage: FREQ:FREQUENCY: QD
  5. ALLOPURINOL [Suspect]
     Indication: BLOOD URIC ACID INCREASED

REACTIONS (2)
  - ALCOHOL INTERACTION [None]
  - LOSS OF CONSCIOUSNESS [None]
